FAERS Safety Report 14631397 (Version 6)
Quarter: 2019Q1

REPORT INFORMATION
  Report Type: Report from Study
  Country: CA (occurrence: CA)
  Receive Date: 20180313
  Receipt Date: 20190330
  Transmission Date: 20190417
  Serious: Yes (Hospitalization, Other)
  Sender: FDA-Public Use
  Company Number: PHHY2018CA015140

PATIENT
  Age: 46 Year
  Sex: Female

DRUGS (2)
  1. SODIUM PHOSPHATE [Concomitant]
     Active Substance: SODIUM PHOSPHATE
     Indication: PRODUCT USED FOR UNKNOWN INDICATION
     Route: 065
  2. GLEEVEC [Suspect]
     Active Substance: IMATINIB MESYLATE
     Indication: GASTROINTESTINAL STROMAL TUMOUR
     Dosage: 1 DF, QD
     Route: 048
     Dates: start: 20171226

REACTIONS (28)
  - Vomiting [Recovered/Resolved]
  - Pallor [Unknown]
  - Oropharyngeal pain [Unknown]
  - Malaise [Unknown]
  - Nausea [Not Recovered/Not Resolved]
  - Faeces hard [Unknown]
  - Tongue fungal infection [Unknown]
  - Flatulence [Unknown]
  - Diarrhoea [Unknown]
  - Dysphagia [Unknown]
  - Faeces soft [Unknown]
  - Eye haemorrhage [Recovered/Resolved]
  - Throat irritation [Unknown]
  - Lung cyst [Unknown]
  - Viral infection [Unknown]
  - Rhinorrhoea [Unknown]
  - Hypocalcaemia [Unknown]
  - Blood calcium decreased [Unknown]
  - Decreased appetite [Unknown]
  - Fatigue [Unknown]
  - Weight decreased [Unknown]
  - Incision site pain [Unknown]
  - Hyperhidrosis [Unknown]
  - Mouth haemorrhage [Unknown]
  - Dizziness [Unknown]
  - Gastrointestinal sounds abnormal [Unknown]
  - Blood sodium decreased [Unknown]
  - Alopecia [Unknown]

NARRATIVE: CASE EVENT DATE: 20180120
